FAERS Safety Report 8518688-2 (Version None)
Quarter: 2012Q3

REPORT INFORMATION
  Report Type: 
  Country: None (occurrence: None)
  Receive Date: 20120718
  Receipt Date: 20110614
  Transmission Date: 20120928
  Serious: Yes (Hospitalization)
  Sender: FDA-Public Use
  Company Number: US-BRISTOL-MYERS SQUIBB COMPANY-15813546

PATIENT
  Age: 80 Year
  Sex: Male

DRUGS (3)
  1. VITAMIN D [Concomitant]
  2. COUMADIN [Suspect]
     Dosage: INCREASED UP TO 10MG
  3. FISH OIL [Concomitant]

REACTIONS (2)
  - HAEMORRHAGIC STROKE [None]
  - INTERNATIONAL NORMALISED RATIO DECREASED [None]
